FAERS Safety Report 14082222 (Version 1)
Quarter: 2017Q4

REPORT INFORMATION
  Report Type: Spontaneous
  Country: US (occurrence: DE)
  Receive Date: 20171013
  Receipt Date: 20171013
  Transmission Date: 20180321
  Serious: Yes (Other)
  Sender: FDA-Public Use
  Company Number: US-GLAXOSMITHKLINE-DE2017GSK156896

PATIENT
  Age: 66 Year
  Sex: Male

DRUGS (2)
  1. OCTENISEPT [Concomitant]
     Active Substance: OCTENIDINE\PHENOXYETHANOL
     Indication: CORYNEBACTERIUM INFECTION
  2. CEFUROXIME. [Suspect]
     Active Substance: CEFUROXIME
     Indication: CORYNEBACTERIUM INFECTION
     Route: 048

REACTIONS (1)
  - Pathogen resistance [Unknown]
